FAERS Safety Report 25909215 (Version 1)
Quarter: 2025Q4

REPORT INFORMATION
  Report Type: Spontaneous
  Country: US (occurrence: US)
  Receive Date: 20251011
  Receipt Date: 20251011
  Transmission Date: 20260118
  Serious: No
  Sender: AMNEAL
  Company Number: US-AMNEAL PHARMACEUTICALS-2023-AMRX-00944

PATIENT
  Sex: Female
  Weight: 236.74 kg

DRUGS (1)
  1. ACETAMINOPHEN\HYDROCODONE [Suspect]
     Active Substance: ACETAMINOPHEN\HYDROCODONE
     Indication: Pain
     Dosage: 1 TABLETS (7.5MG/325MG), 1 /DAY
     Route: 048
     Dates: start: 20230216

REACTIONS (1)
  - Drug ineffective [Unknown]
